FAERS Safety Report 24024151 (Version 3)
Quarter: 2024Q3

REPORT INFORMATION
  Report Type: Report from Study
  Country: AU (occurrence: AU)
  Receive Date: 20240627
  Receipt Date: 20240710
  Transmission Date: 20241016
  Serious: No
  Sender: ROCHE
  Company Number: AU-ROCHE-3271092

PATIENT
  Age: 79 Year
  Sex: Female
  Weight: 56.0 kg

DRUGS (12)
  1. ALECTINIB [Suspect]
     Active Substance: ALECTINIB
     Indication: Non-small cell lung cancer metastatic
     Dosage: START DATE OF MOST RECENT DOSE 600 MG OF STUDY DRUG PRIOR TO AE WAS RECEIVED ON 02/JUN/2022, 19/JAN/
     Route: 048
     Dates: start: 20220530
  2. ALECTINIB [Suspect]
     Active Substance: ALECTINIB
     Route: 048
     Dates: start: 20220503
  3. MAGNESIUM [Concomitant]
     Active Substance: MAGNESIUM
     Indication: Hypomagnesaemia
     Dosage: 1 TABLET
     Route: 048
     Dates: start: 202208
  4. POTASSIUM CHLORIDE [Concomitant]
     Active Substance: POTASSIUM CHLORIDE
     Indication: Hypokalaemia
     Route: 048
     Dates: start: 20220825
  5. DOCUSATE\SENNOSIDES [Concomitant]
     Active Substance: DOCUSATE\SENNOSIDES
     Indication: Constipation
     Dosage: 2 TABLET
     Route: 048
     Dates: start: 202208
  6. ACETAMINOPHEN [Concomitant]
     Active Substance: ACETAMINOPHEN
     Indication: Pain
     Dosage: 2 TABLET
     Route: 048
     Dates: start: 202208
  7. ALBUTEROL [Concomitant]
     Active Substance: ALBUTEROL
     Indication: Chronic obstructive pulmonary disease
     Dosage: 2 PUFF
     Route: 055
     Dates: start: 202208
  8. IPRATROPIUM [Concomitant]
     Active Substance: IPRATROPIUM
     Indication: Chronic obstructive pulmonary disease
     Dosage: 21MCG, 2 PUFF
     Route: 055
     Dates: start: 202208
  9. DEXAMETHASONE [Concomitant]
     Active Substance: DEXAMETHASONE
     Indication: Neoplasm malignant
     Route: 042
     Dates: start: 20230121
  10. THYROXINE [Concomitant]
     Active Substance: LEVOTHYROXINE
     Indication: Hypothyroidism
     Dosage: 75 OTHER, 100 OTHER
     Route: 048
     Dates: start: 2000
  11. TRIMETHOPRIM [Concomitant]
     Active Substance: TRIMETHOPRIM
     Indication: Prophylaxis
     Route: 048
     Dates: start: 20230406
  12. SULFAMETHOXAZOLE [Concomitant]
     Active Substance: SULFAMETHOXAZOLE
     Indication: Prophylaxis
     Route: 048
     Dates: start: 20230406

REACTIONS (2)
  - Dizziness [Not Recovered/Not Resolved]
  - Vomiting [Not Recovered/Not Resolved]

NARRATIVE: CASE EVENT DATE: 20230121
